FAERS Safety Report 6246245-X (Version None)
Quarter: 2009Q2

REPORT INFORMATION
  Report Type: 
  Country: None (occurrence: None)
  Receive Date: 20090626
  Receipt Date: 20090623
  Transmission Date: 20091009
  Serious: Yes (Death, Hospitalization)
  Sender: FDA-Public Use
  Company Number: DK-JNJFOC-20090607675

PATIENT
  Sex: Female

DRUGS (3)
  1. CILEST [Suspect]
     Indication: CONTRACEPTION
     Route: 048
  2. PANTOPRAZOLE SODIUM [Concomitant]
     Route: 048
  3. VOLTAREN [Concomitant]
     Indication: PAIN
     Route: 065

REACTIONS (5)
  - ABDOMINAL PAIN UPPER [None]
  - CHOLECYSTITIS [None]
  - DIARRHOEA [None]
  - PULMONARY EMBOLISM [None]
  - SEPSIS [None]
